FAERS Safety Report 5941705-0 (Version None)
Quarter: 2008Q4

REPORT INFORMATION
  Report Type: 
  Country: None (occurrence: None)
  Receive Date: 20081031
  Receipt Date: 20081017
  Transmission Date: 20090506
  Serious: Yes (Other)
  Sender: FDA-Public Use
  Company Number: 230825K08USA

PATIENT
  Age: 53 Year
  Sex: Female

DRUGS (1)
  1. REBIF [Suspect]
     Indication: MULTIPLE SCLEROSIS
     Dosage: 44 MCG, 3 IN 1 WEEKS, SUBCUTANEOUS
     Route: 058
     Dates: start: 20061014, end: 20080601

REACTIONS (6)
  - ANKLE FRACTURE [None]
  - BALANCE DISORDER [None]
  - FALL [None]
  - IMPLANT SITE IRRITATION [None]
  - JOINT SPRAIN [None]
  - SKIN IRRITATION [None]
